FAERS Safety Report 22332547 (Version 1)
Quarter: 2023Q2

REPORT INFORMATION
  Report Type: Other
  Country: US (occurrence: None)
  Receive Date: 20230517
  Receipt Date: 20230517
  Transmission Date: 20230721
  Serious: Yes (Life-Threatening, Hospitalization)
  Sender: FDA-Public Use
  Company Number: US-ROCHE-3348595

PATIENT
  Age: 82 Year
  Sex: Male

DRUGS (5)
  1. POLATUZUMAB VEDOTIN [Suspect]
     Active Substance: POLATUZUMAB VEDOTIN
     Indication: Lymphoma
     Dosage: THERAPY START DATE: 11/NOV/2022
     Route: 042
     Dates: start: 20220909, end: 20221021
  2. RITUXIMAB [Suspect]
     Active Substance: RITUXIMAB
     Indication: Lymphoma
     Dosage: 375 MG/M2
     Route: 041
     Dates: start: 20220909, end: 20221021
  3. METHYLPREDNISOLONE [Concomitant]
     Active Substance: METHYLPREDNISOLONE
  4. PREDNISONE [Concomitant]
     Active Substance: PREDNISONE
  5. REMDESIVIR [Concomitant]
     Active Substance: REMDESIVIR
     Dates: start: 20230227, end: 20230303

REACTIONS (1)
  - Respiratory failure [Not Recovered/Not Resolved]

NARRATIVE: CASE EVENT DATE: 20230310
